FAERS Safety Report 5007459-X (Version None)
Quarter: 2006Q2

REPORT INFORMATION
  Report Type: 
  Country: None (occurrence: None)
  Receive Date: 20060519
  Receipt Date: 20060519
  Transmission Date: 20061013
  Serious: Yes (Disabling)
  Sender: FDA-Public Use
  Company Number: None

PATIENT
  Sex: Male
  Weight: 137 kg

DRUGS (10)
  1. LIPITOR [Suspect]
     Indication: HYPERLIPIDAEMIA
     Dosage: 80MG  QHS    PO
     Route: 048
     Dates: start: 20040403, end: 20060407
  2. PRAZOSIN HCL [Concomitant]
  3. ATENOLOL [Concomitant]
  4. LIOTHYRONINE NA [Concomitant]
  5. PROTONIX [Concomitant]
  6. RISPERIDONE [Concomitant]
  7. VENLAFAXINE HCL [Concomitant]
  8. ACETAMINOPHEN [Concomitant]
  9. LISINOPRIL AND HYDROCHLOROTHIAZIDE [Concomitant]
  10. TRAZODONE HCL [Concomitant]

REACTIONS (1)
  - MYOSITIS [None]
